FAERS Safety Report 4650200-0 (Version None)
Quarter: 2005Q2

REPORT INFORMATION
  Report Type: 
  Country: None (occurrence: None)
  Receive Date: 20050428
  Receipt Date: 20050323
  Transmission Date: 20051028
  Serious: Yes (Death, Life-Threatening, Hospitalization, Other)
  Sender: FDA-Public Use
  Company Number: 2005-03-1673

PATIENT
  Age: 71 Year
  Sex: Female

DRUGS (8)
  1. PEG-INTRON [Suspect]
     Indication: HEPATITIS C
     Dosage: 30 MCG QW SUBCUTANEOUS
     Route: 058
     Dates: start: 20050308, end: 20050315
  2. REBETOL [Suspect]
     Indication: HEPATITIS C
     Dosage: 400 MG ORAL
     Route: 048
     Dates: start: 20050308, end: 20050315
  3. GLIMICRON [Concomitant]
  4. TORSEMIDE [Concomitant]
  5. LAFUTIDINE [Concomitant]
  6. DEPAS [Concomitant]
  7. URSO 250 [Concomitant]
  8. GLYCYRON [Concomitant]

REACTIONS (3)
  - ACUTE MYOCARDIAL INFARCTION [None]
  - ANAEMIA [None]
  - THROMBOCYTOPENIA [None]
